FAERS Safety Report 4957682-5 (Version None)
Quarter: 2006Q1

REPORT INFORMATION
  Report Type: 
  Country: None (occurrence: None)
  Receive Date: 20060330
  Receipt Date: 20060320
  Transmission Date: 20060701
  Serious: Yes (Other)
  Sender: FDA-Public Use
  Company Number: PHHO2006GB04571

PATIENT
  Age: 67 Year
  Sex: Female
  Weight: 70 kg

DRUGS (3)
  1. ZOLEDRONATE [Suspect]
     Indication: METASTASES TO BONE
     Dosage: 4 MG, UNK
     Route: 042
     Dates: start: 20040202, end: 20060116
  2. VITAMIN D [Concomitant]
     Route: 048
  3. CALCIUM GLUCONATE [Concomitant]
     Route: 048

REACTIONS (7)
  - BONE TRIMMING [None]
  - DENTAL TREATMENT [None]
  - DRUG INEFFECTIVE [None]
  - OSTEITIS [None]
  - OSTEONECROSIS [None]
  - SEPSIS [None]
  - TOOTH EXTRACTION [None]
